FAERS Safety Report 13792235 (Version 1)
Quarter: 2017Q3

REPORT INFORMATION
  Report Type: Report from Study
  Country: CA (occurrence: CA)
  Receive Date: 20170726
  Receipt Date: 20170726
  Transmission Date: 20171127
  Serious: Yes (Other)
  Sender: FDA-Public Use
  Company Number: PHHY2017CA070935

PATIENT
  Sex: Female

DRUGS (1)
  1. GLEEVEC [Suspect]
     Active Substance: IMATINIB MESYLATE
     Indication: GASTROINTESTINAL STROMAL TUMOUR
     Dosage: 400 MG, QD
     Route: 048
     Dates: start: 20170414

REACTIONS (7)
  - Lymphoma [Unknown]
  - Waist circumference decreased [Unknown]
  - Dry skin [Unknown]
  - Rash [Unknown]
  - Erythema [Unknown]
  - Alopecia [Unknown]
  - Photosensitivity reaction [Unknown]
